FAERS Safety Report 7158773-3 (Version None)
Quarter: 2010Q4

REPORT INFORMATION
  Report Type: 
  Country: None (occurrence: None)
  Receive Date: 20101214
  Receipt Date: 20100716
  Transmission Date: 20110411
  Serious: No
  Sender: FDA-Public Use
  Company Number: US-ASTRAZENECA-2010SE33334

PATIENT
  Age: 64 Year
  Sex: Female

DRUGS (3)
  1. CRESTOR [Suspect]
     Indication: HYPERCHOLESTEROLAEMIA
     Route: 048
     Dates: start: 20090501, end: 20090101
  2. CRESTOR [Suspect]
     Route: 048
     Dates: start: 20090101, end: 20090101
  3. CRESTOR [Suspect]
     Route: 048
     Dates: start: 20100527

REACTIONS (1)
  - MUSCLE SPASMS [None]
